FAERS Safety Report 9881772 (Version 2)
Quarter: 2014Q1

REPORT INFORMATION
  Report Type: Spontaneous
  Country: DE (occurrence: DE)
  Receive Date: 20140207
  Receipt Date: 20140318
  Transmission Date: 20141002
  Serious: No
  Sender: FDA-Public Use
  Company Number: DE-INCYTE CORPORATION-2014IN000303

PATIENT
  Sex: Female

DRUGS (2)
  1. JAKAVI [Suspect]
     Indication: POLYCYTHAEMIA VERA
     Dosage: 15 MG, 2 DAILY
     Route: 065
     Dates: start: 201401
  2. JAKAVI [Suspect]
     Indication: OFF LABEL USE

REACTIONS (1)
  - No adverse event [Unknown]
